FAERS Safety Report 5512549-9 (Version None)
Quarter: 2007Q4

REPORT INFORMATION
  Report Type: 
  Country: None (occurrence: None)
  Receive Date: 20071112
  Receipt Date: 20071016
  Transmission Date: 20080405
  Serious: No
  Sender: FDA-Public Use
  Company Number: A0677741A

PATIENT
  Age: 65 Year
  Sex: Female

DRUGS (7)
  1. AVANDAMET [Suspect]
     Dosage: 1TAB TWICE PER DAY
     Route: 048
     Dates: start: 20070402, end: 20070522
  2. CAPTOPRIL [Concomitant]
  3. LIPITOR [Concomitant]
  4. ZETIA [Concomitant]
  5. METOPROLOL TARTRATE [Concomitant]
  6. VITAMINS [Concomitant]
  7. ASPIRIN [Concomitant]

REACTIONS (4)
  - CARDIAC FLUTTER [None]
  - FATIGUE [None]
  - MUSCLE SPASMS [None]
  - NAUSEA [None]
